FAERS Safety Report 21233497 (Version 2)
Quarter: 2022Q3

REPORT INFORMATION
  Report Type: Other
  Country: US (occurrence: US)
  Receive Date: 20220819
  Receipt Date: 20220902
  Transmission Date: 20221026
  Serious: Yes (Hospitalization, Other)
  Sender: FDA-Public Use
  Company Number: US-Covis Pharma GmbH-2022COV02479

PATIENT
  Age: 31 Year
  Sex: Female
  Weight: 95.340 kg

DRUGS (3)
  1. MAKENA [Suspect]
     Active Substance: HYDROXYPROGESTERONE CAPROATE
     Indication: Premature delivery
     Route: 058
     Dates: start: 20220523, end: 20220801
  2. MAKENA [Suspect]
     Active Substance: HYDROXYPROGESTERONE CAPROATE
     Indication: Premature delivery
  3. VITAMINS [Concomitant]
     Active Substance: VITAMINS
     Indication: Product used for unknown indication
     Dosage: ONCE DAILY
     Dates: start: 202201

REACTIONS (6)
  - Maternal distress during labour [Recovered/Resolved]
  - Breech presentation [Recovered/Resolved]
  - Premature delivery [Recovered/Resolved]
  - Vulvovaginal discomfort [Recovered/Resolved]
  - Cervix cerclage procedure [Unknown]
  - Nausea [Recovered/Resolved]

NARRATIVE: CASE EVENT DATE: 20220101
